FAERS Safety Report 7577836-1 (Version None)
Quarter: 2011Q2

REPORT INFORMATION
  Report Type: 
  Country: None (occurrence: None)
  Receive Date: 20110628
  Receipt Date: 20110615
  Transmission Date: 20111010
  Serious: Yes (Other)
  Sender: FDA-Public Use
  Company Number: PHHY2010BR59885

PATIENT
  Sex: Female
  Weight: 50 kg

DRUGS (3)
  1. EXELON [Suspect]
     Dosage: 6 MG, BID
  2. EXELON [Suspect]
     Indication: DEMENTIA ALZHEIMER'S TYPE
     Dosage: 4.5 MG, BID
  3. VASOPRIL [Concomitant]

REACTIONS (7)
  - DYSSTASIA [None]
  - DIZZINESS [None]
  - NAUSEA [None]
  - HEADACHE [None]
  - ABDOMINAL DISCOMFORT [None]
  - FEELING ABNORMAL [None]
  - VOMITING [None]
